FAERS Safety Report 5891035-0 (Version None)
Quarter: 2008Q3

REPORT INFORMATION
  Report Type: 
  Country: None (occurrence: None)
  Receive Date: 20080918
  Receipt Date: 20080918
  Transmission Date: 20090109
  Serious: Yes (Other)
  Sender: FDA-Public Use
  Company Number: None

PATIENT
  Sex: Male
  Weight: 84 kg

DRUGS (2)
  1. CIPROFLOXACIN [Suspect]
     Dosage: 400MG Q12H IV
     Route: 042
     Dates: start: 20080705, end: 20080716
  2. ZOSYN [Suspect]
     Dosage: 4.5GM
     Dates: start: 20080705, end: 20080716

REACTIONS (1)
  - RASH MACULO-PAPULAR [None]
